FAERS Safety Report 16718680 (Version 1)
Quarter: 2019Q3

REPORT INFORMATION
  Report Type: Spontaneous
  Country: PL (occurrence: PL)
  Receive Date: 20190820
  Receipt Date: 20190820
  Transmission Date: 20191005
  Serious: Yes (Other)
  Sender: FDA-Public Use
  Company Number: PL-CELLTRION INC.-2019PL018426

PATIENT

DRUGS (19)
  1. BUDESONIDE. [Suspect]
     Active Substance: BUDESONIDE
     Indication: CROHN^S DISEASE
     Dosage: 3 MILLIGRAM, QD
     Route: 048
     Dates: start: 201405
  2. BUDESONIDE. [Suspect]
     Active Substance: BUDESONIDE
     Dosage: 3 MG, UNK
     Dates: start: 201405
  3. BUDESONIDE. [Suspect]
     Active Substance: BUDESONIDE
     Dosage: 3 MG, UNK
     Dates: start: 201402
  4. AZATHIOPRINE. [Suspect]
     Active Substance: AZATHIOPRINE
     Dosage: UNK
     Dates: start: 200910, end: 201205
  5. NITRENDIPINE [Suspect]
     Active Substance: NITRENDIPINE
     Indication: PRODUCT USED FOR UNKNOWN INDICATION
     Dosage: 15 MG, BID
  6. INFLIXIMAB (UNKNOWN) [Suspect]
     Active Substance: INFLIXIMAB
     Indication: PRODUCT USED FOR UNKNOWN INDICATION
     Dosage: 3 DOSES
     Dates: start: 200804
  7. INFLIXIMAB (UNKNOWN) [Suspect]
     Active Substance: INFLIXIMAB
     Dosage: 3 DOSES
     Dates: end: 200805
  8. METOPROLOL. [Suspect]
     Active Substance: METOPROLOL
     Indication: HYPERTENSION
     Dosage: 50 MILLIGRAM, QD
     Route: 065
  9. BUDESONIDE. [Suspect]
     Active Substance: BUDESONIDE
     Dosage: 3 MG, UNK
     Dates: start: 201012
  10. METHYLPREDNISOLONE. [Suspect]
     Active Substance: METHYLPREDNISOLONE
     Indication: PRODUCT USED FOR UNKNOWN INDICATION
     Dosage: 32 MG, UNK
     Dates: start: 200805
  11. AZATHIOPRINE. [Suspect]
     Active Substance: AZATHIOPRINE
     Indication: PRODUCT USED FOR UNKNOWN INDICATION
     Dosage: 100 MG, UNK
     Dates: start: 201112
  12. AZATHIOPRINE. [Suspect]
     Active Substance: AZATHIOPRINE
     Dosage: UNK
     Dates: start: 201205, end: 201205
  13. BUDESONIDE. [Suspect]
     Active Substance: BUDESONIDE
     Dosage: 3 MG, UNK
     Dates: start: 200911
  14. BUDESONIDE. [Suspect]
     Active Substance: BUDESONIDE
     Dosage: 3 MG, UNK
     Dates: start: 201112
  15. BUDESONIDE. [Suspect]
     Active Substance: BUDESONIDE
     Dosage: 3 MG, UNK
     Dates: start: 201410
  16. INFLIXIMAB (UNKNOWN) [Suspect]
     Active Substance: INFLIXIMAB
     Dosage: 3 DF, UNK
     Route: 065
  17. METHYLPREDNISOLONE. [Suspect]
     Active Substance: METHYLPREDNISOLONE
     Dosage: 32 MG, UNK
     Dates: start: 200802
  18. AZATHIOPRINE. [Suspect]
     Active Substance: AZATHIOPRINE
     Dosage: 100 MG, UNK
     Dates: start: 201012, end: 201205
  19. BUDESONIDE. [Suspect]
     Active Substance: BUDESONIDE
     Dosage: 3 MG UNK
     Dates: start: 201212

REACTIONS (9)
  - Maternal exposure during breast feeding [Unknown]
  - Abdominal pain [Unknown]
  - Pyrexia [Recovered/Resolved]
  - Maternal exposure during pregnancy [Unknown]
  - Diarrhoea [Unknown]
  - C-reactive protein abnormal [Unknown]
  - Proteinuria [Unknown]
  - Urinary tract infection [Unknown]
  - Blood albumin increased [Unknown]

NARRATIVE: CASE EVENT DATE: 200905
